FAERS Safety Report 5855601-0 (Version None)
Quarter: 2008Q3

REPORT INFORMATION
  Report Type: 
  Country: None (occurrence: None)
  Receive Date: 20080821
  Receipt Date: 20080806
  Transmission Date: 20090109
  Serious: Yes (Hospitalization)
  Sender: FDA-Public Use
  Company Number: 237473J08USA

PATIENT
  Age: 55 Year
  Sex: Female
  Weight: 70.3075 kg

DRUGS (6)
  1. REBIF [Suspect]
     Indication: MULTIPLE SCLEROSIS
     Dosage: 44 MCG, 3 IN 1 WEEKS, SUBCUTANEOUS
     Route: 058
     Dates: start: 20060817
  2. BIOCTISAL FORTE (B-COMPLEX) [Concomitant]
  3. ALENDRONATE SODIUM [Concomitant]
  4. GLUCOSAMINE (GLUCOSAMINE/00943601/) [Concomitant]
  5. STOOL SOFTNER (DOCUSATE SODIUM) [Concomitant]
  6. ALEVE (CAPLET) [Concomitant]

REACTIONS (9)
  - BENIGN NEOPLASM OF THYROID GLAND [None]
  - HYPERAESTHESIA [None]
  - HYPOAESTHESIA [None]
  - INJECTION SITE ERYTHEMA [None]
  - INJECTION SITE HAEMATOMA [None]
  - INJECTION SITE PAIN [None]
  - INJECTION SITE SWELLING [None]
  - OEDEMA PERIPHERAL [None]
  - PRURITUS [None]
